FAERS Safety Report 20769953 (Version 2)
Quarter: 2022Q2

REPORT INFORMATION
  Report Type: Spontaneous
  Country: US (occurrence: US)
  Receive Date: 20220429
  Receipt Date: 20220516
  Transmission Date: 20220720
  Serious: Yes (Other)
  Sender: FDA-Public Use
  Company Number: US-AIMMUNE THERAPEUTICS, INC.-2022AIMT00337

PATIENT

DRUGS (8)
  1. PALFORZIA [Suspect]
     Active Substance: PEANUT
     Indication: Food allergy
     Dosage: 300 MG, 1X/DAY
     Route: 048
     Dates: start: 20220314, end: 20220425
  2. PALFORZIA [Suspect]
     Active Substance: PEANUT
     Dosage: 300 MG, ONCE, LAST DOSE PRIOR TO ANAPHYLAXIS
     Route: 048
     Dates: start: 20220425, end: 20220425
  3. PALFORZIA [Suspect]
     Active Substance: PEANUT
     Dosage: 200 MG, ONCE, DOSE DECREASED
     Route: 048
     Dates: start: 20220426, end: 20220426
  4. PALFORZIA [Suspect]
     Active Substance: PEANUT
     Dosage: 220 MG, ONCE, RE-UPDOSE
     Route: 048
     Dates: start: 20220427, end: 20220427
  5. PALFORZIA [Suspect]
     Active Substance: PEANUT
     Dosage: 240 MG, ONCE, RE-UPDOSE
     Route: 048
     Dates: start: 20220428, end: 20220428
  6. PALFORZIA [Suspect]
     Active Substance: PEANUT
     Dosage: 260 MG, ONCE, RE-UPDOSE
     Route: 048
     Dates: start: 20220429, end: 20220429
  7. PALFORZIA [Suspect]
     Active Substance: PEANUT
     Dosage: 280 MG, ONCE, RE-UPDOSE
     Route: 048
     Dates: start: 20220430, end: 20220430
  8. PALFORZIA [Suspect]
     Active Substance: PEANUT
     Dosage: 300 MG, 1X/DAY, RE-UPDOSE
     Route: 048
     Dates: start: 20220501

REACTIONS (10)
  - Anaphylactic reaction [Recovered/Resolved]
  - Joint injury [Recovered/Resolved]
  - Chest discomfort [Recovered/Resolved]
  - Ear swelling [Recovered/Resolved]
  - Cyanosis [Recovered/Resolved]
  - Loss of consciousness [Recovered/Resolved]
  - Tachypnoea [Recovered/Resolved]
  - Urticaria [Recovered/Resolved]
  - Wheezing [Recovered/Resolved]
  - Abdominal pain upper [Recovered/Resolved]

NARRATIVE: CASE EVENT DATE: 20220415
